FAERS Safety Report 19856273 (Version 1)
Quarter: 2021Q3

REPORT INFORMATION
  Report Type: Spontaneous
  Country: DE (occurrence: DE)
  Receive Date: 20210920
  Receipt Date: 20210920
  Transmission Date: 20211014
  Serious: Yes (Hospitalization, Other)
  Sender: FDA-Public Use
  Company Number: DE-TEVA-2021-DE-1952774

PATIENT
  Age: 47 Year
  Sex: Male
  Weight: 76 kg

DRUGS (5)
  1. PREDNISOLON [Concomitant]
     Active Substance: PREDNISOLONE
     Dosage: 2.5 MILLIGRAM DAILY; 5MG,  0.5?0?0?0,
     Route: 048
  2. CELECOXIB. [Suspect]
     Active Substance: CELECOXIB
     Dosage: 200 MILLIGRAM DAILY;  1?0?0?0
     Route: 048
  3. METHOTREXAT [Suspect]
     Active Substance: METHOTREXATE
     Dosage: 15 MG, ACCORDING TO THE SCHEME, PRE?FILLED SYRINGES
     Route: 058
  4. INFLIXIMAB [Suspect]
     Active Substance: INFLIXIMAB
     Dosage: 100 MG, ACCORDING TO THE SCHEME,
     Route: 042
  5. FOLSAURE [Concomitant]
     Active Substance: FOLIC ACID
     Dosage: 5 MG, ACCORDING TO THE SCHEME,
     Route: 048

REACTIONS (2)
  - Dysphagia [Unknown]
  - Oesophageal fibrosis [Unknown]

NARRATIVE: CASE EVENT DATE: 20201225
